FAERS Safety Report 4308980-X (Version None)
Quarter: 2004Q1

REPORT INFORMATION
  Report Type: 
  Country: None (occurrence: None)
  Receive Date: 20040227
  Receipt Date: 20040219
  Transmission Date: 20041129
  Serious: No
  Sender: FDA-Public Use
  Company Number: 2004AP01104

PATIENT
  Age: 75 Year
  Sex: Female

DRUGS (7)
  1. IRESSA [Suspect]
     Indication: LUNG ADENOCARCINOMA
     Dosage: 250 MG DAILY PO
     Route: 048
     Dates: start: 20031127, end: 20040122
  2. IRESSA [Suspect]
     Indication: NON-SMALL CELL LUNG CANCER
     Dosage: 250 MG DAILY PO
     Route: 048
     Dates: start: 20031127, end: 20040122
  3. AMLODIN [Concomitant]
  4. DIAZEPAM [Concomitant]
  5. LORCAM [Concomitant]
  6. SELBEX [Concomitant]
  7. MAGNESIUM OXIDE [Concomitant]

REACTIONS (7)
  - ALANINE AMINOTRANSFERASE INCREASED [None]
  - ASPARTATE AMINOTRANSFERASE INCREASED [None]
  - HEPATIC FUNCTION ABNORMAL [None]
  - PAIN [None]
  - RASH [None]
  - SKIN CHAPPED [None]
  - SKIN ULCER [None]
